FAERS Safety Report 10227011 (Version 1)
Quarter: 2014Q2

REPORT INFORMATION
  Report Type: Spontaneous
  Country: CN (occurrence: CN)
  Receive Date: 20140610
  Receipt Date: 20140610
  Transmission Date: 20141212
  Serious: Yes (Other)
  Sender: FDA-Public Use
  Company Number: CN-ASTRAZENECA-2014SE40272

PATIENT
  Sex: Male
  Weight: 7 kg

DRUGS (5)
  1. BUDESONIDE SUSPENSION FOR INHALATION [Suspect]
     Indication: TRACHEAL DILATATION
     Route: 055
  2. TERBUTALINE SULFATE [Suspect]
     Indication: TRACHEAL DILATATION
     Route: 055
  3. CEFTAZIDIME [Suspect]
     Indication: INFECTION
     Route: 042
  4. AMBROXOL HYDROCHLORIDE [Suspect]
     Indication: SPUTUM ABNORMAL
     Route: 042
  5. IPRATROPIUM BROMIDE [Suspect]
     Indication: TRACHEAL DILATATION
     Route: 055

REACTIONS (1)
  - Granulocytopenia [Recovering/Resolving]
